FAERS Safety Report 16247658 (Version 2)
Quarter: 2020Q2

REPORT INFORMATION
  Report Type: Spontaneous
  Country: US (occurrence: US)
  Receive Date: 20190428
  Receipt Date: 20200615
  Transmission Date: 20200713
  Serious: Yes (Death, Hospitalization)
  Sender: FDA-Public Use
  Company Number: US-JNJFOC-20190422220

PATIENT
  Age: 59 Year
  Sex: Female

DRUGS (1)
  1. XARELTO [Suspect]
     Active Substance: RIVAROXABAN
     Indication: DEEP VEIN THROMBOSIS
     Route: 048
     Dates: start: 20160317, end: 20160427

REACTIONS (3)
  - Septic shock [Fatal]
  - Rectal haemorrhage [Unknown]
  - Ileus [Fatal]

NARRATIVE: CASE EVENT DATE: 20160427
